FAERS Safety Report 9557591 (Version 1)
Quarter: 2013Q3

REPORT INFORMATION
  Report Type: Spontaneous
  Country: US (occurrence: None)
  Receive Date: 20130724
  Receipt Date: 20130724
  Transmission Date: 20140515
  Serious: No
  Sender: FDA-Public Use
  Company Number: PHEH2013US007006

PATIENT
  Age: 42 Year
  Sex: Female

DRUGS (1)
  1. GILENYA (FINGOLIMOD) CAPSULE, 0.5MG [Suspect]
     Indication: MULTIPLE SCLEROSIS
     Route: 048
     Dates: start: 20110404

REACTIONS (6)
  - Abdominal pain lower [None]
  - Nausea [None]
  - Fatigue [None]
  - Decreased appetite [None]
  - Paraesthesia [None]
  - Diarrhoea [None]
